FAERS Safety Report 9892830 (Version 2)
Quarter: 2014Q1

REPORT INFORMATION
  Report Type: Report from Study
  Country: CZ (occurrence: CZ)
  Receive Date: 20140213
  Receipt Date: 20140318
  Transmission Date: 20141002
  Serious: Yes (Disabling)
  Sender: FDA-Public Use
  Company Number: CZ-AMGEN-CZECT2014009446

PATIENT
  Age: 42 Year
  Sex: Female
  Weight: 50 kg

DRUGS (7)
  1. DENOSUMAB [Suspect]
     Indication: BREAST CANCER
     Dosage: 120 MG, UNK
     Route: 058
     Dates: start: 20110228
  2. DALACIN                            /00166002/ [Concomitant]
     Dosage: 300 MG, Q6H
     Dates: start: 20111103
  3. SUPRACAIN [Concomitant]
     Dosage: 1 UNK, UNK
     Route: 058
     Dates: start: 20111103
  4. LOKREN [Concomitant]
     Dosage: 10 MG, UNK
     Route: 048
     Dates: start: 2009, end: 20120513
  5. TRITTICO AC [Concomitant]
     Dosage: 50 MG, UNK
     Route: 048
     Dates: start: 20110930
  6. LIPANTHYL [Concomitant]
     Dosage: 1 UNK, UNK
     Route: 048
     Dates: start: 2009
  7. CALCICHEW D3 [Concomitant]
     Dosage: 1 UNK, UNK
     Route: 048
     Dates: start: 20110228

REACTIONS (1)
  - Periostitis [Recovered/Resolved]
